FAERS Safety Report 19088006 (Version 10)
Quarter: 2022Q3

REPORT INFORMATION
  Report Type: Spontaneous
  Country: US (occurrence: US)
  Receive Date: 20210402
  Receipt Date: 20220909
  Transmission Date: 20221026
  Serious: Yes (Other)
  Sender: FDA-Public Use
  Company Number: US-SA-SAC20210329000685

PATIENT
  Age: 60 Year
  Sex: Female
  Weight: 74.39 kg

DRUGS (5)
  1. CAPRELSA [Suspect]
     Active Substance: VANDETANIB
     Indication: Thyroid cancer
     Dosage: 300 MG, QD
     Route: 048
     Dates: start: 20201203
  2. CAPRELSA [Suspect]
     Active Substance: VANDETANIB
     Dosage: 300 MG, QD
     Route: 048
     Dates: start: 20210105
  3. AMOXICILLIN [Concomitant]
     Active Substance: AMOXICILLIN
     Dosage: UNK
  4. ZOFRAN [Concomitant]
     Active Substance: ONDANSETRON HYDROCHLORIDE
     Indication: Nausea
     Dosage: UNK
  5. POTASSIUM CHLORIDE [Concomitant]
     Active Substance: POTASSIUM CHLORIDE
     Dosage: UNK

REACTIONS (17)
  - Foreign body in throat [Unknown]
  - Pain in extremity [Recovered/Resolved]
  - Bacterial infection [Unknown]
  - Thyroid disorder [Unknown]
  - Nervousness [Unknown]
  - Feeling jittery [Not Recovered/Not Resolved]
  - Hair texture abnormal [Unknown]
  - Ear congestion [Unknown]
  - Onychoclasis [Unknown]
  - Nausea [Unknown]
  - Rash macular [Unknown]
  - Dry skin [Unknown]
  - Diarrhoea [Unknown]
  - Dry mouth [Unknown]
  - Asthenia [Unknown]
  - Dyspepsia [Unknown]
  - Blood potassium decreased [Unknown]

NARRATIVE: CASE EVENT DATE: 20210401
